FAERS Safety Report 14487922 (Version 2)
Quarter: 2018Q1

REPORT INFORMATION
  Report Type: Report from Study
  Country: None (occurrence: PL)
  Receive Date: 20180205
  Receipt Date: 20180226
  Transmission Date: 20180509
  Serious: Yes (Life-Threatening, Hospitalization, Other)
  Sender: FDA-Public Use
  Company Number: PL-ABBVIE-18P-129-2239566-00

PATIENT
  Age: 77 Year
  Sex: Female
  Weight: 48 kg

DRUGS (31)
  1. CONTROLOC [Concomitant]
     Active Substance: PANTOPRAZOLE SODIUM
     Indication: ABDOMINAL PAIN
     Route: 048
     Dates: start: 201709, end: 20180130
  2. CONTROLOC [Concomitant]
     Active Substance: PANTOPRAZOLE SODIUM
     Indication: PAIN PROPHYLAXIS
     Route: 048
     Dates: start: 20171206, end: 20171211
  3. NORMAL SALINE SOLUTION (SODIUM CHLORIDE) [Concomitant]
     Route: 042
     Dates: start: 20171018, end: 20171020
  4. NORMAL SALINE SOLUTION (SODIUM CHLORIDE) [Concomitant]
     Route: 042
     Dates: start: 20171130
  5. VENETOCLAX. [Suspect]
     Active Substance: VENETOCLAX
     Indication: ACUTE MYELOID LEUKAEMIA
     Route: 048
     Dates: start: 20170925, end: 20170925
  6. FLUCONAZOL [Concomitant]
     Active Substance: FLUCONAZOLE
     Indication: INFECTION PROPHYLAXIS
     Route: 048
     Dates: start: 201709, end: 20171220
  7. DIFLUCAN [Concomitant]
     Active Substance: FLUCONAZOLE
     Indication: PROPHYLAXIS
     Route: 042
     Dates: start: 20180127
  8. NORMAL SALINE SOLUTION (SODIUM CHLORIDE) [Concomitant]
     Route: 042
     Dates: start: 20171018, end: 20171020
  9. BISOCARD [Concomitant]
     Active Substance: BISOPROLOL
     Indication: ATRIAL FIBRILLATION
     Route: 048
     Dates: start: 2016, end: 20180129
  10. NORMAL SALINE SOLUTION (SODIUM CHLORIDE) [Concomitant]
     Indication: FLUID REPLACEMENT
     Route: 042
     Dates: start: 20171004, end: 20171015
  11. NORMAL SALINE SOLUTION (SODIUM CHLORIDE) [Concomitant]
     Route: 042
     Dates: start: 20170925, end: 20170926
  12. NORMAL SALINE SOLUTION (SODIUM CHLORIDE) [Concomitant]
     Route: 042
     Dates: start: 20171129, end: 20171129
  13. NORMAL SALINE SOLUTION (SODIUM CHLORIDE) [Concomitant]
     Route: 042
     Dates: start: 20180104, end: 20180105
  14. NORMAL SALINE SOLUTION (SODIUM CHLORIDE) [Concomitant]
     Route: 042
     Dates: start: 20180126, end: 20180126
  15. NORMAL SALINE SOLUTION (SODIUM CHLORIDE) [Concomitant]
     Indication: PROPHYLAXIS
     Route: 042
     Dates: start: 20170920, end: 20170924
  16. NORMAL SALINE SOLUTION (SODIUM CHLORIDE) [Concomitant]
     Indication: ASTHENIA
     Route: 042
     Dates: start: 20170927, end: 20170928
  17. NORMAL SALINE SOLUTION (SODIUM CHLORIDE) [Concomitant]
     Route: 042
     Dates: start: 20171228, end: 20180103
  18. NORMAL SALINE SOLUTION (SODIUM CHLORIDE) [Concomitant]
     Route: 042
     Dates: start: 20171018, end: 20171018
  19. NORMAL SALINE SOLUTION (SODIUM CHLORIDE) [Concomitant]
     Route: 042
     Dates: start: 20171018, end: 20171020
  20. NORMAL SALINE SOLUTION (SODIUM CHLORIDE) [Concomitant]
     Route: 042
     Dates: start: 20171215, end: 20171216
  21. VENETOCLAX. [Suspect]
     Active Substance: VENETOCLAX
     Route: 048
     Dates: start: 20170927, end: 20170927
  22. AZACITIDINE. [Suspect]
     Active Substance: AZACITIDINE
     Indication: ACUTE MYELOID LEUKAEMIA
     Dosage: DAILY FOR 7 DAYS OF A 28 DAY CYCLE
     Route: 058
     Dates: start: 20170925, end: 20180127
  23. BISEPTOL [Concomitant]
     Active Substance: SULFAMETHOXAZOLE\TRIMETHOPRIM
     Route: 042
     Dates: start: 20171018, end: 20171019
  24. NORMAL SALINE SOLUTION (SODIUM CHLORIDE) [Concomitant]
     Route: 042
     Dates: start: 20170929, end: 20171003
  25. NORMAL SALINE SOLUTION (SODIUM CHLORIDE) [Concomitant]
     Route: 042
     Dates: start: 20171127, end: 20171128
  26. NORMAL SALINE SOLUTION (SODIUM CHLORIDE) [Concomitant]
     Route: 042
     Dates: start: 20180127, end: 20180127
  27. VENETOCLAX. [Suspect]
     Active Substance: VENETOCLAX
     Route: 048
     Dates: start: 20170928, end: 20180127
  28. BISEPTOL [Concomitant]
     Active Substance: SULFAMETHOXAZOLE\TRIMETHOPRIM
     Indication: INFECTION PROPHYLAXIS
     Route: 048
     Dates: start: 201709
  29. NORMAL SALINE SOLUTION (SODIUM CHLORIDE) [Concomitant]
     Indication: SUBCUTANEOUS ABSCESS
     Route: 042
     Dates: start: 20170925, end: 20170925
  30. FLUCONAZOL [Concomitant]
     Active Substance: FLUCONAZOLE
     Route: 048
     Dates: start: 20171221
  31. DIFLUCAN [Concomitant]
     Active Substance: FLUCONAZOLE
     Indication: NEUTROPENIA

REACTIONS (1)
  - Sepsis [Recovered/Resolved]

NARRATIVE: CASE EVENT DATE: 20180127
